FAERS Safety Report 11951545 (Version 2)
Quarter: 2016Q1

REPORT INFORMATION
  Report Type: Report from Study
  Country: JP (occurrence: JP)
  Receive Date: 20160126
  Receipt Date: 20160307
  Transmission Date: 20160526
  Serious: Yes (Other)
  Sender: FDA-Public Use
  Company Number: JP-VIFOR (INTERNATIONAL) INC.-VIT-2016-00139

PATIENT
  Age: 82 Year
  Sex: Female

DRUGS (32)
  1. FERROMIA [Concomitant]
     Active Substance: FERROUS CITRATE
     Indication: DIABETIC NEPHROPATHY
     Route: 048
     Dates: start: 20130820, end: 20131017
  2. AZILVA [Concomitant]
     Active Substance: AZILSARTAN KAMEDOXOMIL
     Route: 048
     Dates: start: 20130917, end: 20131017
  3. MIRCERA [Suspect]
     Active Substance: METHOXY POLYETHYLENE GLYCOL-EPOETIN BETA
     Route: 058
     Dates: start: 20130820, end: 20130820
  4. ADALAT CC [Concomitant]
     Active Substance: NIFEDIPINE
     Route: 048
     Dates: start: 20130917
  5. FRANDOL [Concomitant]
     Active Substance: ISOSORBIDE DINITRATE
     Indication: PAIN
     Route: 062
     Dates: start: 20130709, end: 20130722
  6. MIRCERA [Suspect]
     Active Substance: METHOXY POLYETHYLENE GLYCOL-EPOETIN BETA
     Route: 058
     Dates: start: 20150428
  7. SELBEX [Concomitant]
     Active Substance: TEPRENONE
     Route: 048
  8. LANDEL [Concomitant]
     Active Substance: UNSPECIFIED INGREDIENT
     Route: 048
  9. GLUCOBAY [Concomitant]
     Active Substance: ACARBOSE
     Indication: DIABETIC NEPHROPATHY
     Route: 048
     Dates: end: 20140203
  10. SIGMART [Concomitant]
     Active Substance: NICORANDIL
     Indication: PROPHYLAXIS
     Route: 048
     Dates: start: 20131126
  11. MIRCERA [Suspect]
     Active Substance: METHOXY POLYETHYLENE GLYCOL-EPOETIN BETA
     Route: 058
     Dates: start: 20130917, end: 20131112
  12. TAKEPRON [Concomitant]
     Active Substance: LANSOPRAZOLE
     Route: 048
  13. ADALAT CC [Concomitant]
     Active Substance: NIFEDIPINE
     Route: 048
  14. NITOROL [Concomitant]
     Active Substance: ISOSORBIDE DINITRATE
     Indication: CHEST PAIN
     Route: 048
     Dates: start: 20131112, end: 20131125
  15. MIRCERA [Suspect]
     Active Substance: METHOXY POLYETHYLENE GLYCOL-EPOETIN BETA
     Route: 058
     Dates: start: 20131210, end: 20150331
  16. CARDENALIN [Concomitant]
     Active Substance: DOXAZOSIN MESYLATE
     Route: 048
  17. MICARDIS [Concomitant]
     Active Substance: TELMISARTAN
     Route: 048
     Dates: start: 20131001, end: 20131015
  18. MICOMBI COMBINATION [Concomitant]
     Active Substance: HYDROCHLOROTHIAZIDE\TELMISARTAN
     Route: 048
     Dates: start: 20131210
  19. ADALAT CC [Concomitant]
     Active Substance: NIFEDIPINE
     Route: 048
     Dates: start: 20130820
  20. FEBURIC [Concomitant]
     Active Substance: FEBUXOSTAT
     Route: 048
  21. LUPRAC [Concomitant]
     Active Substance: TORSEMIDE
     Route: 048
     Dates: end: 20140813
  22. CALONAL [Concomitant]
     Active Substance: ACETAMINOPHEN
     Indication: PAIN
     Route: 048
     Dates: start: 20130709, end: 20130722
  23. SEIBULE [Concomitant]
     Active Substance: MIGLITOL
     Route: 048
     Dates: start: 20140204
  24. TRAZENTA [Concomitant]
     Active Substance: LINAGLIPTIN
     Route: 048
     Dates: start: 20140108
  25. AZILVA [Concomitant]
     Active Substance: AZILSARTAN KAMEDOXOMIL
     Route: 048
     Dates: start: 20130927, end: 20131001
  26. LASIX [Concomitant]
     Active Substance: FUROSEMIDE
     Route: 048
     Dates: start: 20140812
  27. MIRCERA [Suspect]
     Active Substance: METHOXY POLYETHYLENE GLYCOL-EPOETIN BETA
     Indication: NEPHROGENIC ANAEMIA
     Route: 058
     Dates: start: 20130528, end: 20130723
  28. SELBEX [Concomitant]
     Active Substance: TEPRENONE
     Indication: PAIN
     Route: 048
     Dates: start: 20130709, end: 20130722
  29. MICARDIS [Concomitant]
     Active Substance: TELMISARTAN
     Route: 048
  30. METHYCOBAL [Concomitant]
     Active Substance: METHYLCOBALAMIN
     Route: 048
  31. KALIMATE [Concomitant]
     Active Substance: CALCIUM POLYSTYRENE SULFONATE
     Route: 048
  32. BAYASPIRIN [Concomitant]
     Active Substance: ASPIRIN
     Indication: PROPHYLAXIS
     Route: 048
     Dates: start: 20131126

REACTIONS (4)
  - Chest pain [Recovered/Resolved]
  - Angina pectoris [Recovered/Resolved]
  - Dyspnoea [Unknown]
  - Hypertension [Recovering/Resolving]

NARRATIVE: CASE EVENT DATE: 20131126
